FAERS Safety Report 7503685-6 (Version None)
Quarter: 2011Q2

REPORT INFORMATION
  Report Type: 
  Country: None (occurrence: None)
  Receive Date: 20110525
  Receipt Date: 20110519
  Transmission Date: 20111010
  Serious: Yes (Hospitalization)
  Sender: FDA-Public Use
  Company Number: GB-PFIZER INC-2011102937

PATIENT
  Age: 70 Year
  Sex: Female
  Weight: 115.5 kg

DRUGS (12)
  1. LEVOTHYROXINE SODIUM [Concomitant]
     Indication: BLOOD THYROID STIMULATING HORMONE DECREASED
     Dosage: 150 UG, 1X/DAY
     Dates: start: 20080918
  2. ROFECOXIB [Concomitant]
     Indication: NEURALGIA
     Dosage: 12.5 MG, AS NEEDED
     Dates: start: 19990817
  3. ASTEMIZOLE [Concomitant]
     Indication: HYPERSENSITIVITY
     Dosage: 10 MG, AS NEEDED
     Dates: start: 19970815
  4. LEVOTHYROXINE SODIUM [Concomitant]
     Indication: PRIMARY HYPOTHYROIDISM
  5. SIMVASTATIN [Concomitant]
     Indication: HYPERLIPIDAEMIA
     Dosage: 40 MG, 1X/DAY
     Dates: start: 20080501
  6. SOMATROPIN RDNA [Suspect]
     Indication: HYPOPITUITARISM
     Dosage: 0.4 MG/DAY (7INJECTIONS/WEEK)
     Dates: start: 19980212
  7. METFORMIN [Concomitant]
     Indication: DIABETES MELLITUS
     Dosage: 500 MG, 2X/DAY
     Dates: start: 20010824
  8. PIRITON [Concomitant]
     Indication: HYPERSENSITIVITY
     Dosage: 4 MG, AS NEEDED
     Dates: start: 20010115
  9. FLUDROCORTISONE ACETATE [Concomitant]
     Indication: BLOOD CORTICOTROPHIN DECREASED
     Dosage: 200 UG, 1X/DAY
     Dates: start: 20071011
  10. PRASTERONE [Concomitant]
     Dosage: 25 MG, 1X/DAY
     Dates: start: 20061101
  11. HYDROCORTISONE [Concomitant]
     Indication: BLOOD CORTICOTROPHIN DECREASED
     Dosage: 25 MG, 1X/DAY
     Dates: start: 20030313
  12. ROFECOXIB [Concomitant]
     Indication: NEURITIS

REACTIONS (1)
  - CIRCULATORY COLLAPSE [None]
